FAERS Safety Report 18147793 (Version 2)
Quarter: 2020Q3

REPORT INFORMATION
  Report Type: Report from Study
  Country: US (occurrence: US)
  Receive Date: 20200813
  Receipt Date: 20200820
  Transmission Date: 20201103
  Serious: Yes (Hospitalization)
  Sender: FDA-Public Use
  Company Number: US-ACTELION-A-NJ2020-208084

PATIENT
  Sex: Female
  Weight: 49.89 kg

DRUGS (1)
  1. VELETRI [Suspect]
     Active Substance: EPOPROSTENOL
     Indication: PULMONARY ARTERIAL HYPERTENSION
     Dosage: 6 NG/KG, PER MIN
     Route: 042

REACTIONS (6)
  - Nausea [Unknown]
  - Dizziness [Unknown]
  - Fluid retention [Unknown]
  - Hospitalisation [Unknown]
  - Hypotension [Unknown]
  - Headache [Unknown]
